FAERS Safety Report 7081670-9 (Version None)
Quarter: 2010Q4

REPORT INFORMATION
  Report Type: 
  Country: None (occurrence: None)
  Receive Date: 20101103
  Receipt Date: 20101025
  Transmission Date: 20110411
  Serious: Yes (Other)
  Sender: FDA-Public Use
  Company Number: US-ASTRAZENECA-2010SE50689

PATIENT
  Age: 53 Year
  Sex: Male
  Weight: 99.8 kg

DRUGS (5)
  1. CRESTOR [Suspect]
     Indication: BLOOD CHOLESTEROL INCREASED
     Route: 048
  2. PHENOBARTITAL [Concomitant]
     Indication: CONVULSION
  3. LOTRAM [Concomitant]
     Indication: BLOOD PRESSURE
  4. METOPROLOL [Concomitant]
     Indication: BLOOD PRESSURE
  5. QUADA-INEX [Concomitant]
     Indication: BLOOD PRESSURE

REACTIONS (3)
  - CONVULSION [None]
  - HYPERTENSION [None]
  - VISUAL ACUITY REDUCED [None]
